FAERS Safety Report 18488771 (Version 1)
Quarter: 2020Q4

REPORT INFORMATION
  Report Type: Spontaneous
  Country: US (occurrence: US)
  Receive Date: 20201110
  Receipt Date: 20201110
  Transmission Date: 20210114
  Serious: Yes (Other)
  Sender: FDA-Public Use
  Company Number: US-NAPPMUNDI-USA-2020-0152165

PATIENT
  Sex: Female

DRUGS (2)
  1. MORPHINE SULFATE (SIMILAR TO NDA 19-516) [Suspect]
     Active Substance: MORPHINE SULFATE
     Indication: MIGRAINE
     Route: 048
  2. OXYCODONE HCL ER [Concomitant]
     Active Substance: OXYCODONE HYDROCHLORIDE
     Indication: ROAD TRAFFIC ACCIDENT
     Dosage: 3 TABLET, BID, 80MG
     Route: 048
     Dates: start: 2007, end: 20200415

REACTIONS (3)
  - Urticaria [Unknown]
  - Dyspnoea [Unknown]
  - Drug hypersensitivity [Unknown]
